FAERS Safety Report 7553953 (Version 3)
Quarter: 2014Q4

REPORT INFORMATION
  Report Type: Spontaneous
  Country: US (occurrence: US)
  Receive Date: 20100825
  Receipt Date: 20141007
  Transmission Date: 20150529
  Serious: Yes (Hospitalization)
  Sender: FDA-Public Use
  Company Number: US-US-EMD SERONO, INC.-7014727

PATIENT
  Age: 59 Year
  Sex: Female

DRUGS (1)
  1. REBIF [Suspect]
     Active Substance: INTERFERON BETA-1A
     Indication: MULTIPLE SCLEROSIS
     Dates: start: 20020920

REACTIONS (7)
  - Carpal tunnel syndrome [Unknown]
  - Dehydration [Unknown]
  - Sinusitis [Not Recovered/Not Resolved]
  - Haematochezia [Unknown]
  - Diverticulitis [Not Recovered/Not Resolved]
  - Temporomandibular joint syndrome [Unknown]
  - Musculoskeletal discomfort [Unknown]

NARRATIVE: CASE EVENT DATE: 20100813
